FAERS Safety Report 7834097-3 (Version None)
Quarter: 2011Q4

REPORT INFORMATION
  Report Type: 
  Country: None (occurrence: None)
  Receive Date: 20111024
  Receipt Date: 20111024
  Transmission Date: 20120403
  Serious: No
  Sender: FDA-Public Use
  Company Number: None

PATIENT
  Age: 72 Year
  Sex: Female
  Weight: 48.987 kg

DRUGS (1)
  1. BOTOX [Suspect]

REACTIONS (9)
  - LID LAG [None]
  - VISION BLURRED [None]
  - IMPAIRED DRIVING ABILITY [None]
  - EYE DISORDER [None]
  - OVERDOSE [None]
  - VISUAL ACUITY REDUCED [None]
  - HEADACHE [None]
  - ALTERED VISUAL DEPTH PERCEPTION [None]
  - EYELID OEDEMA [None]
